FAERS Safety Report 4854955-1 (Version None)
Quarter: 2005Q4

REPORT INFORMATION
  Report Type: 
  Country: None (occurrence: None)
  Receive Date: 20051214
  Receipt Date: 20051209
  Transmission Date: 20060501
  Serious: Yes (Other)
  Sender: FDA-Public Use
  Company Number: 143944USA

PATIENT
  Age: 48 Year
  Sex: Male

DRUGS (3)
  1. GLATIRAMER ACETATE [Suspect]
     Indication: MULTIPLE SCLEROSIS
     Dosage: 20 MILLIGRAM, ORAL
     Route: 048
     Dates: start: 20010425
  2. GABAPENTIN [Concomitant]
  3. NOVO-TRIPTINE [Concomitant]

REACTIONS (4)
  - INJECTION SITE BRUISING [None]
  - INJECTION SITE NECROSIS [None]
  - INJECTION SITE PAIN [None]
  - SCAB [None]
